FAERS Safety Report 22343028 (Version 1)
Quarter: 2023Q2

REPORT INFORMATION
  Report Type: Report from Study
  Country: CA (occurrence: CA)
  Receive Date: 20230519
  Receipt Date: 20230519
  Transmission Date: 20230722
  Serious: Yes (Hospitalization, Other)
  Sender: FDA-Public Use
  Company Number: CA-JNJFOC-20221119543

PATIENT
  Age: 52 Year
  Sex: Female
  Weight: 115 kg

DRUGS (2)
  1. STELARA [Suspect]
     Active Substance: USTEKINUMAB
     Indication: Crohn^s disease
     Route: 042
     Dates: start: 20220913
  2. STELARA [Suspect]
     Active Substance: USTEKINUMAB
     Dosage: RECEIVED INJECTION ON 08-NOV-2022?WILL BE GETTING STELARA SUBCUTANEOUS 90MG Q8WK
     Route: 058

REACTIONS (8)
  - Abdominal wall abscess [Unknown]
  - Beta haemolytic streptococcal infection [Recovered/Resolved]
  - Abdominal wall cyst [Recovering/Resolving]
  - Abdominal infection [Unknown]
  - Abdominal wall oedema [Unknown]
  - Mass [Unknown]
  - Wound [Recovering/Resolving]
  - Gastrointestinal inflammation [Unknown]

NARRATIVE: CASE EVENT DATE: 20220101
